FAERS Safety Report 13675887 (Version 1)
Quarter: 2017Q2

REPORT INFORMATION
  Report Type: Spontaneous
  Country: US (occurrence: US)
  Receive Date: 20170620
  Receipt Date: 20170620
  Transmission Date: 20170830
  Serious: Yes (Life-Threatening, Disabling, Other)
  Sender: FDA-Public Use
  Company Number: None

PATIENT
  Age: 62 Year
  Sex: Female
  Weight: 80.55 kg

DRUGS (12)
  1. G.E. SIMVASTATIN [Concomitant]
  2. FLUTICASONE PROPIONATE. [Concomitant]
     Active Substance: FLUTICASONE PROPIONATE
  3. RAMIPRIL. [Concomitant]
     Active Substance: RAMIPRIL
  4. MULTIVITAMIN [Concomitant]
     Active Substance: VITAMINS
  5. POTASSIUM GLUCONATE [Concomitant]
     Active Substance: POTASSIUM GLUCONATE
  6. ANASTROZOLE. [Suspect]
     Active Substance: ANASTROZOLE
     Indication: BREAST CANCER
     Dosage: ?          QUANTITY:1 TABLET(S);?
     Route: 048
     Dates: start: 20161012, end: 20170418
  7. TYLENOL [Concomitant]
     Active Substance: ACETAMINOPHEN
  8. METFORMIN [Concomitant]
     Active Substance: METFORMIN HYDROCHLORIDE
  9. G.E. LEVOCETIRIZINE [Concomitant]
  10. G.E. CLOPIDOGREL [Concomitant]
  11. HYDROCLORORHIAZIDE [Concomitant]
  12. CALCIUM [Concomitant]
     Active Substance: CALCIUM

REACTIONS (3)
  - Pain in extremity [None]
  - Therapy cessation [None]
  - Movement disorder [None]

NARRATIVE: CASE EVENT DATE: 20170417
